FAERS Safety Report 8545429-5 (Version None)
Quarter: 2012Q3

REPORT INFORMATION
  Report Type: 
  Country: None (occurrence: None)
  Receive Date: 20120727
  Receipt Date: 20120112
  Transmission Date: 20120928
  Serious: No
  Sender: FDA-Public Use
  Company Number: US-ASTRAZENECA-2011SE66915

PATIENT
  Age: 61 Year
  Sex: Female
  Weight: 84.8 kg

DRUGS (3)
  1. DIVALPROEX SODIUM [Concomitant]
  2. FOLIC ACID [Concomitant]
  3. SEROQUEL XR [Suspect]
     Route: 048
     Dates: start: 20111020

REACTIONS (3)
  - FEELING ABNORMAL [None]
  - AGGRESSION [None]
  - DRUG DOSE OMISSION [None]
